FAERS Safety Report 25322159 (Version 1)
Quarter: 2025Q2

REPORT INFORMATION
  Report Type: Spontaneous
  Country: DE (occurrence: DE)
  Receive Date: 20250516
  Receipt Date: 20250516
  Transmission Date: 20250717
  Serious: No
  Sender: ALKEM
  Company Number: DE-ALKEM LABORATORIES LIMITED-DE-ALKEM-2024-26605

PATIENT
  Age: 75 Year
  Sex: Male

DRUGS (1)
  1. RILUZOLE [Suspect]
     Active Substance: RILUZOLE
     Indication: Amyotrophic lateral sclerosis
     Route: 048

REACTIONS (4)
  - Foaming at mouth [Unknown]
  - Feeling abnormal [Unknown]
  - Product preparation issue [Unknown]
  - Drug ineffective [Unknown]
